FAERS Safety Report 17461741 (Version 4)
Quarter: 2021Q1

REPORT INFORMATION
  Report Type: Report from Study
  Country: US (occurrence: US)
  Receive Date: 20200226
  Receipt Date: 20210106
  Transmission Date: 20210419
  Serious: Yes (Other)
  Sender: FDA-Public Use
  Company Number: NVSC2020US054566

PATIENT
  Age: 38 Year
  Sex: Female

DRUGS (2)
  1. GILENYA [Suspect]
     Active Substance: FINGOLIMOD HYDROCHLORIDE
     Dosage: 0.5 MG, QD
     Route: 048
     Dates: start: 20170228
  2. GILENYA [Suspect]
     Active Substance: FINGOLIMOD HYDROCHLORIDE
     Indication: MULTIPLE SCLEROSIS
     Dosage: 0.5 MG, QD
     Route: 048
     Dates: start: 20170223

REACTIONS (10)
  - Skin cancer [Unknown]
  - Blister [Unknown]
  - Decreased interest [Unknown]
  - Dizziness [Unknown]
  - Movement disorder [Not Recovered/Not Resolved]
  - Depression [Unknown]
  - Nausea [Unknown]
  - Hypersensitivity [Unknown]
  - Skin irritation [Unknown]
  - Pain [Unknown]

NARRATIVE: CASE EVENT DATE: 202001
